FAERS Safety Report 14183603 (Version 3)
Quarter: 2018Q1

REPORT INFORMATION
  Report Type: Spontaneous
  Country: FR (occurrence: FR)
  Receive Date: 20171113
  Receipt Date: 20180226
  Transmission Date: 20180508
  Serious: Yes (Hospitalization, Other)
  Sender: FDA-Public Use
  Company Number: FR-ALLERGAN-1764407US

PATIENT
  Age: 61 Year
  Sex: Female

DRUGS (9)
  1. AMLOR [Suspect]
     Active Substance: AMLODIPINE BESYLATE
     Indication: HYPERTENSION
     Dosage: 5 MG, QD
     Route: 048
     Dates: start: 20150101
  2. NORMACOL [Suspect]
     Active Substance: HERBALS\KARAYA GUM
     Indication: CONSTIPATION
     Dosage: UNK UNK, BID
     Route: 054
     Dates: start: 20150101
  3. FOLIC ACID. [Suspect]
     Active Substance: FOLIC ACID
     Indication: PRODUCT USED FOR UNKNOWN INDICATION
     Dosage: 250 ?G, QD
     Route: 048
     Dates: start: 20150101, end: 20170920
  4. ZOCOR [Suspect]
     Active Substance: SIMVASTATIN
     Indication: HYPERCHOLESTEROLAEMIA
     Dosage: UNK
     Route: 048
     Dates: start: 20150101, end: 20170920
  5. BACLOFEN. [Suspect]
     Active Substance: BACLOFEN
     Indication: MUSCLE SPASMS
     Dosage: 20 MG, TID
     Route: 048
     Dates: start: 20150101
  6. NEBIVOLOL HCL - BP [Suspect]
     Active Substance: NEBIVOLOL
     Indication: HYPERTENSION
     Dosage: 5 MG, QD
     Route: 048
     Dates: start: 20150101
  7. VALIUM [Suspect]
     Active Substance: DIAZEPAM
     Indication: ANXIETY
     Dosage: 10 MG, QD
     Route: 048
     Dates: start: 20150101, end: 20171010
  8. ANAFRANIL [Suspect]
     Active Substance: CLOMIPRAMINE HYDROCHLORIDE
     Indication: PRODUCT USED FOR UNKNOWN INDICATION
     Dosage: 25 MG, QD
     Route: 048
     Dates: start: 20150101
  9. DESLORATADINE. [Suspect]
     Active Substance: DESLORATADINE
     Indication: HYPERSENSITIVITY
     Dosage: 5 MG, QD
     Route: 048
     Dates: start: 20150101, end: 20170911

REACTIONS (7)
  - Hepatitis B virus test positive [Unknown]
  - Intervertebral disc disorder [Unknown]
  - Dermatitis exfoliative generalised [Not Recovered/Not Resolved]
  - Gastrointestinal stromal tumour [Unknown]
  - Eczema [Unknown]
  - Angioedema [Not Recovered/Not Resolved]
  - Rash [Recovering/Resolving]

NARRATIVE: CASE EVENT DATE: 20170911
